FAERS Safety Report 5235132-1 (Version None)
Quarter: 2007Q1

REPORT INFORMATION
  Report Type: 
  Country: None (occurrence: None)
  Receive Date: 20070207
  Receipt Date: 20070123
  Transmission Date: 20070707
  Serious: Yes (Other)
  Sender: FDA-Public Use
  Company Number: A-JP2006-12155

PATIENT
  Age: 14 Year
  Sex: Female
  Weight: 44 kg

DRUGS (8)
  1. TRACLEER [Suspect]
     Indication: PULMONARY HYPERTENSION
     Dosage: 31.25 MG, BID, ORAL; SEE IMAGE
     Route: 048
     Dates: start: 20060406, end: 20060708
  2. TRACLEER [Suspect]
     Indication: PULMONARY HYPERTENSION
     Dosage: 31.25 MG, BID, ORAL; SEE IMAGE
     Route: 048
     Dates: start: 20060709, end: 20060710
  3. TRACLEER [Suspect]
     Indication: PULMONARY HYPERTENSION
     Dosage: 31.25 MG, BID, ORAL; SEE IMAGE
     Route: 048
     Dates: start: 20060711, end: 20060717
  4. TRACLEER [Suspect]
     Indication: PULMONARY HYPERTENSION
     Dosage: 31.25 MG, BID, ORAL; SEE IMAGE
     Route: 048
     Dates: start: 20060718
  5. DIGOXIN [Concomitant]
  6. OXYGEN (OXYGEN) [Concomitant]
  7. PRAZOSIN GITS [Concomitant]
  8. ALLOPURINOL [Concomitant]

REACTIONS (4)
  - ALANINE AMINOTRANSFERASE INCREASED [None]
  - ASPARTATE AMINOTRANSFERASE INCREASED [None]
  - BLOOD BILIRUBIN INCREASED [None]
  - LIVER FUNCTION TEST ABNORMAL [None]
